FAERS Safety Report 8361707-7 (Version None)
Quarter: 2012Q2

REPORT INFORMATION
  Report Type: 
  Country: None (occurrence: None)
  Receive Date: 20120515
  Receipt Date: 20120508
  Transmission Date: 20120825
  Serious: Yes (Hospitalization)
  Sender: FDA-Public Use
  Company Number: FR-ROXANE LABORATORIES, INC.-2012-RO-01197RO

PATIENT
  Age: 26 Year
  Sex: Female

DRUGS (4)
  1. ALLOPURINOL [Suspect]
     Indication: CROHN'S DISEASE
     Dosage: 100 MG
  2. CORTICOSTEROIDS [Suspect]
     Indication: CROHN'S DISEASE
  3. MERCAPTOPURINE [Suspect]
     Indication: CROHN'S DISEASE
     Dosage: 25 MG
     Dates: start: 20100201
  4. AZATHIOPRINE [Suspect]
     Indication: CROHN'S DISEASE

REACTIONS (1)
  - HEPATITIS E [None]
